FAERS Safety Report 13433615 (Version 1)
Quarter: 2017Q2

REPORT INFORMATION
  Report Type: Spontaneous
  Country: US (occurrence: US)
  Receive Date: 20170412
  Receipt Date: 20170412
  Transmission Date: 20170830
  Serious: No
  Sender: FDA-Public Use
  Company Number: US-009507513-1704USA000686

PATIENT
  Age: 20 Year
  Sex: Female

DRUGS (1)
  1. NEXPLANON [Suspect]
     Active Substance: ETONOGESTREL
     Indication: CONTRACEPTION
     Dosage: 1 DF, UNK
     Route: 059
     Dates: start: 20140613, end: 20170320

REACTIONS (10)
  - Connective tissue disorder [Unknown]
  - Anxiety [Unknown]
  - Menometrorrhagia [Unknown]
  - Complication associated with device [Recovered/Resolved]
  - Device difficult to use [Recovered/Resolved]
  - Device deployment issue [Recovered/Resolved]
  - Migration of implanted drug [Recovered/Resolved]
  - Discomfort [Unknown]
  - Weight increased [Unknown]
  - Complication of device removal [Recovered/Resolved]

NARRATIVE: CASE EVENT DATE: 20170313
